FAERS Safety Report 6199597-3 (Version None)
Quarter: 2009Q2

REPORT INFORMATION
  Report Type: 
  Country: None (occurrence: None)
  Receive Date: 20090522
  Receipt Date: 20090518
  Transmission Date: 20091009
  Serious: Yes (Other)
  Sender: FDA-Public Use
  Company Number: D0060949A

PATIENT
  Sex: Male
  Weight: 126 kg

DRUGS (2)
  1. ARIXTRA [Suspect]
     Indication: OFF LABEL USE
     Dosage: 10MG PER DAY
     Route: 058
     Dates: start: 20090224, end: 20090316
  2. MARCUMAR [Concomitant]
     Route: 065

REACTIONS (3)
  - HAEMATOMA [None]
  - HAEMORRHAGE [None]
  - SUPERINFECTION [None]
